FAERS Safety Report 25567074 (Version 1)
Quarter: 2025Q3

REPORT INFORMATION
  Report Type: Spontaneous
  Country: US (occurrence: None)
  Receive Date: 20250716
  Receipt Date: 20250716
  Transmission Date: 20251021
  Serious: Yes (Hospitalization)
  Sender: FDA-CTU
  Company Number: None

PATIENT
  Sex: Female

DRUGS (5)
  1. ACTEMRA [Suspect]
     Active Substance: TOCILIZUMAB
     Indication: Rheumatoid arthritis
     Route: 058
     Dates: start: 20211201
  2. FLONASE ALGY SPR 50MCG [Concomitant]
  3. OMEPRAZOLE [Concomitant]
     Active Substance: OMEPRAZOLE
  4. XARELTO [Concomitant]
     Active Substance: RIVAROXABAN
  5. ZYRTEC ALLGYTAB 10MG [Concomitant]

REACTIONS (4)
  - Diverticulitis [None]
  - Thrombocytopenia [None]
  - Venous thrombosis [None]
  - Hepatic enzyme increased [None]
